FAERS Safety Report 4534806-5 (Version None)
Quarter: 2004Q4

REPORT INFORMATION
  Report Type: 
  Country: None (occurrence: None)
  Receive Date: 20041222
  Receipt Date: 20040319
  Transmission Date: 20050328
  Serious: No
  Sender: FDA-Public Use
  Company Number: US-BRISTOL-MYERS SQUIBB COMPANY-12537841

PATIENT
  Age: 82 Year
  Sex: Male
  Weight: 70 kg

DRUGS (5)
  1. PRAVACHOL [Suspect]
     Indication: BLOOD CHOLESTEROL INCREASED
     Dosage: DURATION OF THERAPY = 2-3 YEARS; DOSAGE FORM = TABLET
     Route: 048
  2. DIOVAN [Concomitant]
  3. IRON [Concomitant]
  4. ASPIRIN [Concomitant]
  5. XALATAN [Concomitant]

REACTIONS (1)
  - ERECTILE DYSFUNCTION [None]
